FAERS Safety Report 7406289-9 (Version None)
Quarter: 2011Q2

REPORT INFORMATION
  Report Type: 
  Country: None (occurrence: None)
  Receive Date: 20110411
  Receipt Date: 20110401
  Transmission Date: 20111010
  Serious: Yes (Other)
  Sender: FDA-Public Use
  Company Number: JP-AMGEN-JPNCT2011005312

PATIENT
  Age: 56 Year
  Sex: Male
  Weight: 58 kg

DRUGS (17)
  1. MAGNESIUM OXIDE [Concomitant]
     Route: 048
  2. HICEE GRANULES 25% [Concomitant]
     Route: 048
  3. ELPLAT [Suspect]
     Indication: COLORECTAL CANCER
     Route: 041
     Dates: start: 20101110, end: 20101208
  4. TAKEPRON OD TABLETS 15 [Concomitant]
     Route: 048
  5. ANTIHISTAMINES [Concomitant]
     Indication: PROPHYLAXIS
     Dosage: UNK
     Route: 065
  6. CORTICOSTEROIDS [Concomitant]
     Indication: PROPHYLAXIS
     Dosage: UNK
     Route: 065
  7. NIVADIL [Concomitant]
     Route: 048
  8. FLUOROURACIL [Suspect]
     Route: 041
     Dates: start: 20101110, end: 20101208
  9. PANITUMUMAB [Suspect]
     Dosage: 4.8 MG/KG, Q2WK
     Dates: start: 20101229
  10. ROHYPNOL [Concomitant]
     Route: 048
  11. PANITUMUMAB [Suspect]
     Indication: COLORECTAL CANCER
     Dosage: 6 MG/KG, Q2WK
     Route: 041
     Dates: start: 20101110, end: 20101208
  12. FLUOROURACIL [Suspect]
     Indication: COLORECTAL CANCER
     Route: 040
     Dates: start: 20101110, end: 20101208
  13. FERROUS CITRATE [Concomitant]
     Route: 048
  14. VECTIBIX [Suspect]
     Route: 041
     Dates: start: 20101229
  15. CALCIUM LEVOFOLINATE [Concomitant]
     Indication: COLORECTAL CANCER
     Route: 041
     Dates: start: 20101110, end: 20101208
  16. TSUMURA GOSHAJINKIGAN [Concomitant]
     Route: 048
  17. VECTIBIX [Suspect]
     Indication: COLORECTAL CANCER
     Route: 041
     Dates: start: 20101110, end: 20101208

REACTIONS (2)
  - NEUTROPHIL COUNT DECREASED [None]
  - DERMATITIS ACNEIFORM [None]
